FAERS Safety Report 22087719 (Version 3)
Quarter: 2023Q4

REPORT INFORMATION
  Report Type: Report from Study
  Country: US (occurrence: US)
  Receive Date: 20230313
  Receipt Date: 20231107
  Transmission Date: 20240110
  Serious: Yes (Hospitalization, Other)
  Sender: FDA-Public Use
  Company Number: US-ABBVIE-4332899

PATIENT
  Sex: Male
  Weight: 170 kg

DRUGS (6)
  1. HUMIRA [Suspect]
     Active Substance: ADALIMUMAB
     Indication: Crohn^s disease
     Dosage: FORM STRENGTH: 40 MG
     Route: 058
     Dates: start: 20111103
  2. HUMIRA [Suspect]
     Active Substance: ADALIMUMAB
     Dosage: FORM STRENGTH: 40 MILLIGRAM
     Route: 058
     Dates: start: 20130316
  3. HUMIRA [Suspect]
     Active Substance: ADALIMUMAB
     Dosage: FORM STRENGTH: 40 MILLIGRAM
     Route: 058
     Dates: start: 2014
  4. ELIQUIS [Concomitant]
     Active Substance: APIXABAN
     Indication: Product used for unknown indication
  5. REMICADE [Suspect]
     Active Substance: INFLIXIMAB
     Indication: Product used for unknown indication
     Route: 065
  6. OXYBUTYNIN [Concomitant]
     Active Substance: OXYBUTYNIN
     Indication: Product used for unknown indication

REACTIONS (15)
  - Bladder perforation [Recovering/Resolving]
  - Hypophagia [Unknown]
  - Crohn^s disease [Unknown]
  - Gastrointestinal disorder [Recovering/Resolving]
  - Adverse drug reaction [Unknown]
  - Therapeutic product effect decreased [Unknown]
  - Fistula [Unknown]
  - Arthralgia [Not Recovered/Not Resolved]
  - Hidradenitis [Unknown]
  - Sciatica [Not Recovered/Not Resolved]
  - Colectomy [Unknown]
  - Fluid intake reduced [Unknown]
  - Surgery [Unknown]
  - Colostomy [Unknown]
  - Prostate cancer [Recovered/Resolved]

NARRATIVE: CASE EVENT DATE: 20150101
